FAERS Safety Report 4845902-7 (Version None)
Quarter: 2005Q4

REPORT INFORMATION
  Report Type: 
  Country: None (occurrence: None)
  Receive Date: 20051206
  Receipt Date: 20051026
  Transmission Date: 20060501
  Serious: Yes (Hospitalization)
  Sender: FDA-Public Use
  Company Number: TR-AVENTIS-200519409GDDC

PATIENT
  Age: 50 Year
  Sex: Male

DRUGS (3)
  1. RIFAMPICIN [Suspect]
     Indication: BRUCELLOSIS
     Dosage: DOSE: UNK
  2. TETRACYCLINE [Concomitant]
     Indication: BRUCELLOSIS
  3. STREPTOMYCIN [Concomitant]

REACTIONS (11)
  - AORTIC VALVE INCOMPETENCE [None]
  - ASPARTATE AMINOTRANSFERASE INCREASED [None]
  - BLOOD LACTATE DEHYDROGENASE INCREASED [None]
  - HAEMODIALYSIS [None]
  - HAEMOLYTIC ANAEMIA [None]
  - HYPERTHYROIDISM [None]
  - MITRAL VALVE INCOMPETENCE [None]
  - NEUROTOXICITY [None]
  - PANCREATITIS [None]
  - RENAL FAILURE ACUTE [None]
  - TUBULOINTERSTITIAL NEPHRITIS [None]
